FAERS Safety Report 4492045-0 (Version None)
Quarter: 2005Q1

REPORT INFORMATION
  Report Type: 
  Country: None (occurrence: None)
  Receive Date: 20041101
  Receipt Date: 20041014
  Transmission Date: 20050727
  Serious: Yes (Hospitalization)
  Sender: FDA-Public Use
  Company Number: F01200403200

PATIENT
  Age: 72 Year
  Sex: Female

DRUGS (5)
  1. (OXALIPLATIN) - SOLUTION - 130 MG/M2 [Suspect]
     Indication: COLON CANCER METASTATIC
     Dosage: 250 MG Q32
     Route: 042
     Dates: start: 20031205, end: 20031205
  2. XELODA [Suspect]
     Dosage: 3300 MG FROM D2 TO D15, Q3W
     Route: 048
     Dates: start: 20031206, end: 20031215
  3. OMEPRAZOLE [Concomitant]
  4. ONDANSETRON [Concomitant]
  5. DEXAMETHASONE [Concomitant]

REACTIONS (8)
  - DIARRHOEA [None]
  - DYSGEUSIA [None]
  - NEUTROPHIL COUNT DECREASED [None]
  - PARAESTHESIA ORAL [None]
  - RENAL FAILURE ACUTE [None]
  - STOMATITIS [None]
  - TRISMUS [None]
  - WHITE BLOOD CELL COUNT DECREASED [None]
